FAERS Safety Report 5259937-6 (Version None)
Quarter: 2007Q1

REPORT INFORMATION
  Report Type: 
  Country: None (occurrence: None)
  Receive Date: 20070309
  Receipt Date: 20070228
  Transmission Date: 20070707
  Serious: Yes (Other)
  Sender: FDA-Public Use
  Company Number: SER/8/3900

PATIENT
  Sex: Female

DRUGS (3)
  1. PAROXETINE HCL [Suspect]
     Indication: DEPRESSION
     Route: 048
  2. PAROXETINE HCL [Suspect]
     Indication: DEPRESSION
     Route: 048
  3. DIAZEPAM [Concomitant]
     Route: 065

REACTIONS (6)
  - AGGRESSION [None]
  - DRUG WITHDRAWAL SYNDROME [None]
  - PAIN IN EXTREMITY [None]
  - PARAESTHESIA [None]
  - SLEEP DISORDER [None]
  - TEARFULNESS [None]
